FAERS Safety Report 6883236-X (Version None)
Quarter: 2010Q3

REPORT INFORMATION
  Report Type: 
  Country: None (occurrence: None)
  Receive Date: 20100727
  Receipt Date: 20080421
  Transmission Date: 20110219
  Serious: Yes (Death, Hospitalization, Other)
  Sender: FDA-Public Use
  Company Number: US-PFIZER INC-2006073499

PATIENT
  Sex: Female
  Weight: 80.7 kg

DRUGS (1)
  1. CELEBREX [Suspect]
     Indication: SERONEGATIVE ARTHRITIS
     Dates: start: 20020601, end: 20041214

REACTIONS (2)
  - ARTHRITIS [None]
  - CARDIAC FAILURE [None]
